FAERS Safety Report 4445899-8 (Version None)
Quarter: 2004Q3

REPORT INFORMATION
  Report Type: 
  Country: None (occurrence: None)
  Receive Date: 20040903
  Receipt Date: 20040827
  Transmission Date: 20050211
  Serious: Yes (Hospitalization)
  Sender: FDA-Public Use
  Company Number: KII-2004-0013228

PATIENT
  Age: 34 Year
  Sex: Male

DRUGS (2)
  1. OXYCODONE HCL [Suspect]
     Dosage: ORAL
     Route: 048
  2. BENZODIAZEPINE DERIVATES [Suspect]
     Dosage: ORAL
     Route: 048

REACTIONS (4)
  - ALCOHOLISM [None]
  - DRUG TOXICITY [None]
  - SELF-MEDICATION [None]
  - SOMNOLENCE [None]
